FAERS Safety Report 5492162-2 (Version None)
Quarter: 2007Q4

REPORT INFORMATION
  Report Type: 
  Country: None (occurrence: None)
  Receive Date: 20071015
  Receipt Date: 20070626
  Transmission Date: 20080405
  Serious: No
  Sender: FDA-Public Use
  Company Number: 2007SP002375

PATIENT
  Age: 66 Year
  Sex: Female
  Weight: 54.4316 kg

DRUGS (3)
  1. LUNESTA [Suspect]
     Indication: INSOMNIA
     Dosage: 2 MG; ORAL; 3 MG; ORAL
     Route: 048
     Dates: start: 20070601, end: 20070601
  2. LUNESTA [Suspect]
     Indication: INSOMNIA
     Dosage: 2 MG; ORAL; 3 MG; ORAL
     Route: 048
     Dates: start: 20070601, end: 20070601
  3. ACETAMINOPHEN [Concomitant]

REACTIONS (2)
  - DYSGEUSIA [None]
  - MIDDLE INSOMNIA [None]
